FAERS Safety Report 13092881 (Version 1)
Quarter: 2017Q1

REPORT INFORMATION
  Report Type: Spontaneous
  Country: US (occurrence: US)
  Receive Date: 20170106
  Receipt Date: 20170106
  Transmission Date: 20170428
  Serious: No
  Sender: FDA-Public Use
  Company Number: US-JNJFOC-20161223959

PATIENT
  Age: 77 Year
  Sex: Male

DRUGS (5)
  1. TYLENOL [Suspect]
     Active Substance: ACETAMINOPHEN
     Indication: MALAISE
     Route: 065
     Dates: start: 20161223
  2. TYLENOL [Suspect]
     Active Substance: ACETAMINOPHEN
     Indication: DISCOMFORT
     Route: 065
     Dates: start: 20161223
  3. TYLENOL [Suspect]
     Active Substance: ACETAMINOPHEN
     Indication: HEADACHE
     Route: 065
     Dates: start: 20161223
  4. MOTRIN [Interacting]
     Active Substance: IBUPROFEN
     Indication: MALAISE
     Route: 065
  5. MOTRIN [Interacting]
     Active Substance: IBUPROFEN
     Route: 065

REACTIONS (3)
  - Drug interaction [Unknown]
  - Head discomfort [Unknown]
  - Pyrexia [Unknown]

NARRATIVE: CASE EVENT DATE: 201612
